FAERS Safety Report 7249596-5 (Version None)
Quarter: 2011Q1

REPORT INFORMATION
  Report Type: 
  Country: None (occurrence: None)
  Receive Date: 20110119
  Receipt Date: 20110105
  Transmission Date: 20110831
  Serious: Yes (Death)
  Sender: FDA-Public Use
  Company Number: 201101AGG00967

PATIENT
  Age: 53 Year
  Sex: Male

DRUGS (19)
  1. PLAVIX [Concomitant]
  2. HYPNOVEL [Concomitant]
  3. FENTANYL [Concomitant]
  4. AGGRASTAT [Suspect]
     Indication: VASODILATION PROCEDURE
     Dosage: IV
     Route: 042
     Dates: start: 20100315, end: 20100318
  5. TEMERIT [Concomitant]
  6. INTEGRILIN [Concomitant]
  7. ORGARAN [Concomitant]
  8. RAMIPRIL [Concomitant]
  9. NEXIUM [Concomitant]
  10. NOVOSEVEN [Concomitant]
  11. TAHOR [Concomitant]
  12. HEPARIN SODIUM [Concomitant]
  13. INSULIN [Concomitant]
  14. EUPRESSYL [Concomitant]
  15. LASIX [Concomitant]
  16. ARANESP [Concomitant]
  17. ASPIRIN [Concomitant]
  18. EPINEPHRINE [Concomitant]
  19. NOREPINEPHRINE BITARTRATE [Concomitant]

REACTIONS (10)
  - CARDIOGENIC SHOCK [None]
  - PUNCTURE SITE HAEMORRHAGE [None]
  - SHOCK HAEMORRHAGIC [None]
  - CATHETER SITE HAEMORRHAGE [None]
  - PULSE ABSENT [None]
  - THROMBOCYTOPENIA [None]
  - HAEMOGLOBIN DECREASED [None]
  - BACTERIAL SEPSIS [None]
  - PERIPHERAL ISCHAEMIA [None]
  - MULTI-ORGAN FAILURE [None]
